FAERS Safety Report 17093438 (Version 3)
Quarter: 2020Q1

REPORT INFORMATION
  Report Type: Spontaneous
  Country: US (occurrence: US)
  Receive Date: 20191129
  Receipt Date: 20200206
  Transmission Date: 20200409
  Serious: No
  Sender: FDA-Public Use
  Company Number: US-BIOGEN-2019BI00812073

PATIENT
  Age: 36 Year
  Sex: Female

DRUGS (2)
  1. TECFIDERA [Suspect]
     Active Substance: DIMETHYL FUMARATE
     Indication: MULTIPLE SCLEROSIS
     Route: 048
     Dates: start: 20191116, end: 20191123
  2. TECFIDERA [Suspect]
     Active Substance: DIMETHYL FUMARATE
     Route: 065
     Dates: start: 20191124

REACTIONS (6)
  - Fatigue [Unknown]
  - Peripheral swelling [Unknown]
  - Hot flush [Unknown]
  - Abdominal pain upper [Unknown]
  - Faeces soft [Unknown]
  - Weight increased [Unknown]

NARRATIVE: CASE EVENT DATE: 20191125
